FAERS Safety Report 16748602 (Version 2)
Quarter: 2019Q3

REPORT INFORMATION
  Report Type: Spontaneous
  Country: US (occurrence: US)
  Receive Date: 20190828
  Receipt Date: 20190913
  Transmission Date: 20191005
  Serious: No
  Sender: FDA-Public Use
  Company Number: US-JNJFOC-20190831746

PATIENT
  Age: 79 Year
  Sex: Female

DRUGS (2)
  1. TYLENOL 8 HR ARTHRITIS PAIN [Suspect]
     Active Substance: ACETAMINOPHEN
     Indication: ANALGESIC THERAPY
     Dosage: TOOK 2 THE FIRST DAY AND THEN TOOK 1 PILL A DAY FOR THE REST OF THE TIME
     Route: 048
     Dates: start: 20190816
  2. TYLENOL 8 HR ARTHRITIS PAIN [Suspect]
     Active Substance: ACETAMINOPHEN
     Dosage: TOOK 2 THE FIRST DAY AND THEN TOOK 1 PILL A DAY FOR THE REST OF THE TIME
     Route: 048
     Dates: start: 20190817

REACTIONS (2)
  - Incorrect dose administered [Unknown]
  - Inappropriate schedule of product administration [Unknown]

NARRATIVE: CASE EVENT DATE: 20190816
